FAERS Safety Report 7441131-1 (Version None)
Quarter: 2011Q2

REPORT INFORMATION
  Report Type: 
  Country: None (occurrence: None)
  Receive Date: 20110428
  Receipt Date: 20110419
  Transmission Date: 20111010
  Serious: Yes (Other)
  Sender: FDA-Public Use
  Company Number: AU-AMGEN-AUSSP2011021042

PATIENT
  Sex: Male

DRUGS (2)
  1. ENBREL [Suspect]
     Indication: PRODUCT USED FOR UNKNOWN INDICATION
     Dosage: UNK
  2. DIGOXIN [Concomitant]
     Dosage: UNK

REACTIONS (3)
  - MEMORY IMPAIRMENT [None]
  - INFLUENZA [None]
  - INCORRECT STORAGE OF DRUG [None]
